FAERS Safety Report 5717521-1 (Version None)
Quarter: 2008Q2

REPORT INFORMATION
  Report Type: 
  Country: None (occurrence: None)
  Receive Date: 20080425
  Receipt Date: 20080414
  Transmission Date: 20081010
  Serious: Yes (Death)
  Sender: FDA-Public Use
  Company Number: US-BRISTOL-MYERS SQUIBB COMPANY-14157408

PATIENT
  Age: 75 Year
  Sex: Female

DRUGS (1)
  1. SINEMET [Suspect]
     Indication: PARKINSON'S DISEASE

REACTIONS (3)
  - DEMENTIA WITH LEWY BODIES [None]
  - DRUG INTOLERANCE [None]
  - GASTROINTESTINAL DISORDER [None]
